FAERS Safety Report 21994838 (Version 1)
Quarter: 2023Q1

REPORT INFORMATION
  Report Type: Spontaneous
  Country: US (occurrence: None)
  Receive Date: 20230214
  Receipt Date: 20230214
  Transmission Date: 20230417
  Serious: Yes (Hospitalization)
  Sender: FDA-Public Use
  Company Number: None

PATIENT
  Age: 74 Year
  Sex: Female

DRUGS (11)
  1. GAMUNEX-C [Suspect]
     Active Substance: HUMAN IMMUNOGLOBULIN G
     Dosage: OTHER FREQUENCY : EVERY 10 DAYS;?
     Route: 042
     Dates: start: 20191007
  2. Hydroxyzine 25mg PO PRN [Concomitant]
  3. Metoprolol tartrate 100mg PO Qday [Concomitant]
  4. Propranolol 10mg PO Qday [Concomitant]
  5. Telmisartan 20mg PO Qday [Concomitant]
  6. Tramadol 100mg PO TID [Concomitant]
  7. Valproate 500mg IV pre-IVIG [Concomitant]
  8. NS 500mL pre- + post-IVIG infusion [Concomitant]
  9. Acetaminophen 500mg PO pre-IVIG [Concomitant]
  10. Diphenhydramine 25mg PO pre-IVIG [Concomitant]
  11. Aspirin 325mg PO pre-IVIG [Concomitant]

REACTIONS (1)
  - Cerebrovascular accident [None]

NARRATIVE: CASE EVENT DATE: 20230105
